FAERS Safety Report 13097901 (Version 3)
Quarter: 2017Q4

REPORT INFORMATION
  Report Type: Spontaneous
  Country: US (occurrence: US)
  Receive Date: 20170109
  Receipt Date: 20171016
  Transmission Date: 20180320
  Serious: Yes (Other)
  Sender: FDA-Public Use
  Company Number: US-AMGEN-USASP2017001039

PATIENT
  Age: 65 Year
  Sex: Male
  Weight: 115.65 kg

DRUGS (1)
  1. PROLIA [Suspect]
     Active Substance: DENOSUMAB
     Indication: BONE LOSS
     Dosage: 60 MG, Q6MO
     Route: 065

REACTIONS (3)
  - Osteonecrosis of jaw [Unknown]
  - Mastication disorder [Unknown]
  - Pain in jaw [Unknown]
